FAERS Safety Report 9510595 (Version 1)
Quarter: 2013Q3

REPORT INFORMATION
  Report Type: Spontaneous
  Country: DE (occurrence: DE)
  Receive Date: 20130909
  Receipt Date: 20130909
  Transmission Date: 20140515
  Serious: Yes (Other)
  Sender: FDA-Public Use
  Company Number: DE-PFIZER INC-2013257695

PATIENT
  Age: 60 Year
  Sex: Male

DRUGS (2)
  1. NEURONTIN [Suspect]
     Dosage: 300 MG, 2X/DAY
  2. MARCUMAR [Concomitant]
     Dosage: UNK

REACTIONS (2)
  - Renal failure acute [Unknown]
  - Gastrointestinal haemorrhage [Unknown]
